FAERS Safety Report 20766766 (Version 12)
Quarter: 2023Q1

REPORT INFORMATION
  Report Type: Report from Study
  Country: AU (occurrence: AU)
  Receive Date: 20220429
  Receipt Date: 20230316
  Transmission Date: 20230417
  Serious: Yes (Other)
  Sender: FDA-Public Use
  Company Number: AU-AMGEN-AUSCT2022061891

PATIENT
  Age: 12 Year
  Sex: Male

DRUGS (24)
  1. CARFILZOMIB [Suspect]
     Active Substance: CARFILZOMIB
     Indication: Acute lymphocytic leukaemia
     Dosage: 37 MILLIGRAM
     Route: 042
     Dates: start: 20220405
  2. CARFILZOMIB [Suspect]
     Active Substance: CARFILZOMIB
     Dosage: 104 MILLIGRAM
     Route: 042
     Dates: start: 20220407
  3. METHOTREXATE [Concomitant]
     Active Substance: METHOTREXATE
     Dosage: 15 MILLIGRAM
     Route: 037
     Dates: start: 20220404, end: 20220419
  4. CYTARABINE [Concomitant]
     Active Substance: CYTARABINE
     Dosage: 30 MILLIGRAM
     Dates: start: 20220404, end: 20220419
  5. FENTANYL [Concomitant]
     Active Substance: FENTANYL
     Dosage: 750-1500 MICROGRAM (SODIUM CHLORIDE)
     Route: 042
     Dates: start: 20220221, end: 20220406
  6. ACETAMINOPHEN [Concomitant]
     Active Substance: ACETAMINOPHEN
     Dosage: 1 GRAM
     Route: 042
     Dates: start: 20220301, end: 20220424
  7. PALONOSETRON [Concomitant]
     Active Substance: PALONOSETRON
     Dosage: 250 MICROGRAM
     Route: 042
     Dates: start: 20220307, end: 20220422
  8. BUTYLSCOPOLAMINE BROMIDE [Concomitant]
     Active Substance: BUTYLSCOPOLAMINE BROMIDE
     Dosage: 20 MILLIGRAM
     Route: 042
     Dates: start: 20220317, end: 20220420
  9. LEVOMEPROMAZINE [Concomitant]
     Active Substance: LEVOMEPROMAZINE
     Dosage: 1 MILLIGRAM
     Route: 042
     Dates: start: 20220327, end: 20220404
  10. PIPERACILLIN AND TAZOBACTAM [Concomitant]
     Active Substance: PIPERACILLIN SODIUM\TAZOBACTAM SODIUM
     Dosage: 4 GRAM
     Route: 042
     Dates: start: 20220330, end: 20220414
  11. HYDROCORTISONE [Concomitant]
     Active Substance: HYDROCORTISONE
     Dosage: 15 MILLIGRAM
     Dates: start: 20220404, end: 20220419
  12. VORICONAZOLE [Concomitant]
     Active Substance: VORICONAZOLE
     Dosage: 450 MILLIGRAM
     Route: 042
     Dates: start: 20220330, end: 20220331
  13. AMOXICILLIN [Concomitant]
     Active Substance: AMOXICILLIN
     Dosage: 250 MILLIGRAM
     Route: 042
     Dates: start: 20220330, end: 20220411
  14. METFORMIN [Concomitant]
     Active Substance: METFORMIN HYDROCHLORIDE
     Dosage: 500 MILLIGRAM
     Route: 048
     Dates: start: 20220330, end: 20220419
  15. MICAFUNGIN [Concomitant]
     Active Substance: MICAFUNGIN
     Dosage: 50 MILLIGRAM
     Route: 042
     Dates: start: 20220331, end: 20220423
  16. FOSAPREPITANT [Concomitant]
     Active Substance: FOSAPREPITANT
     Dosage: 150 MILLIGRAM
     Route: 042
     Dates: start: 20220401, end: 20220401
  17. ALTEPLASE [Concomitant]
     Active Substance: ALTEPLASE
     Dosage: 1.5 MILLIGRAM
     Route: 050
     Dates: start: 20220403, end: 20220418
  18. REMIFENTANIL [Concomitant]
     Active Substance: REMIFENTANIL
     Dosage: UNK
     Route: 042
     Dates: start: 20220404, end: 20220419
  19. PROPOFOL [Concomitant]
     Active Substance: PROPOFOL
     Dosage: 3-20 UNK, 150- 600 MILLIGRAM
     Route: 042
     Dates: start: 20220404, end: 20220419
  20. METOCLOPRAMIDE [Concomitant]
     Active Substance: METOCLOPRAMIDE
     Dosage: 10 MILLIGRAM
     Route: 042
     Dates: start: 20220404, end: 20220406
  21. FUROSEMIDE [Concomitant]
     Active Substance: FUROSEMIDE
     Dosage: UNK
     Route: 042
     Dates: start: 20220330, end: 20220423
  22. DIAZEPAM [Concomitant]
     Active Substance: DIAZEPAM
     Dosage: UNK
     Route: 042
     Dates: start: 20220403, end: 20220423
  23. TRANEXAMIC ACID [Concomitant]
     Active Substance: TRANEXAMIC ACID
     Dosage: UNK
     Route: 042
     Dates: start: 20220404, end: 20220408
  24. PANTOPRAZOLE [Concomitant]
     Active Substance: PANTOPRAZOLE
     Dosage: 40 MILLIGRAM
     Route: 042
     Dates: start: 20220105, end: 20220423

REACTIONS (1)
  - Abdominal pain [Not Recovered/Not Resolved]

NARRATIVE: CASE EVENT DATE: 20220405
